FAERS Safety Report 18717000 (Version 1)
Quarter: 2021Q1

REPORT INFORMATION
  Report Type: Spontaneous
  Country: US (occurrence: US)
  Receive Date: 20210108
  Receipt Date: 20210108
  Transmission Date: 20210419
  Serious: No
  Sender: FDA-Public Use
  Company Number: US-PFIZER INC-2020220096

PATIENT
  Age: 66 Year
  Sex: Female
  Weight: 84.37 kg

DRUGS (1)
  1. IBRANCE [Suspect]
     Active Substance: PALBOCICLIB
     Indication: BREAST CANCER METASTATIC
     Dosage: 125 MG, CYCLIC (1 CAPSULE AT SAME TIME DAILY ON DAYS 1?21 OF EACH 28 DAY CYCLE)
     Route: 048

REACTIONS (1)
  - Neoplasm progression [Unknown]
